FAERS Safety Report 11024616 (Version 1)
Quarter: 2015Q2

REPORT INFORMATION
  Report Type: Spontaneous
  Country: US (occurrence: None)
  Receive Date: 20150410
  Receipt Date: 20150410
  Transmission Date: 20150821
  Serious: Yes (Death)
  Sender: FDA-Public Use
  Company Number: US-LHC-2015045

PATIENT
  Age: 62 Year
  Sex: Female

DRUGS (1)
  1. OXYGEN (GENERIC) (OXYGEN) (GAS FOR INHALATION) (VERUM) [Suspect]
     Active Substance: OXYGEN
     Indication: ACCIDENTAL EXPOSURE TO PRODUCT
     Route: 055

REACTIONS (3)
  - Electric shock [None]
  - Accidental death [None]
  - Thermal burn [None]

NARRATIVE: CASE EVENT DATE: 20090501
